FAERS Safety Report 16348819 (Version 1)
Quarter: 2019Q2

REPORT INFORMATION
  Report Type: Report from Study
  Country: IT (occurrence: IT)
  Receive Date: 20190523
  Receipt Date: 20190523
  Transmission Date: 20190711
  Serious: Yes (Hospitalization)
  Sender: FDA-Public Use
  Company Number: IT-JNJFOC-20190525708

PATIENT
  Age: 49 Year
  Sex: Female

DRUGS (2)
  1. TRABECTEDIN [Suspect]
     Active Substance: TRABECTEDIN
     Indication: OVARIAN CANCER RECURRENT
     Route: 042
  2. PLD [Suspect]
     Active Substance: DOXORUBICIN HYDROCHLORIDE
     Indication: OVARIAN CANCER RECURRENT
     Route: 042

REACTIONS (2)
  - Enteritis [Recovered/Resolved]
  - Clostridium difficile infection [Recovered/Resolved]

NARRATIVE: CASE EVENT DATE: 20180131
